FAERS Safety Report 9689325 (Version 2)
Quarter: 2013Q4

REPORT INFORMATION
  Report Type: Report from Study
  Country: US (occurrence: US)
  Receive Date: 20131114
  Receipt Date: 20131209
  Transmission Date: 20140711
  Serious: No
  Sender: FDA-Public Use
  Company Number: US-VERTEX PHARMACEUTICALS INC-2013-011009

PATIENT
  Age: 20 Year
  Sex: Male

DRUGS (1)
  1. VX-770 [Suspect]
     Indication: CYSTIC FIBROSIS
     Dosage: 150 MG, Q12H
     Dates: start: 20120217

REACTIONS (2)
  - Bacterial infection [Recovered/Resolved]
  - Nasopharyngitis [Recovered/Resolved]
